FAERS Safety Report 16007284 (Version 2)
Quarter: 2024Q4

REPORT INFORMATION
  Report Type: Report from Study
  Country: US (occurrence: US)
  Receive Date: 20190226
  Receipt Date: 20241230
  Transmission Date: 20250115
  Serious: Yes (Other)
  Sender: JOHNSON AND JOHNSON
  Company Number: US-JNJFOC-20190227733

PATIENT

DRUGS (7)
  1. IBRUTINIB [Suspect]
     Active Substance: IBRUTINIB
     Indication: B-cell lymphoma
     Route: 048
  2. UBLITUXIMAB [Suspect]
     Active Substance: UBLITUXIMAB
     Indication: Chronic lymphocytic leukaemia
     Route: 065
  3. UBLITUXIMAB [Suspect]
     Active Substance: UBLITUXIMAB
     Indication: B-cell lymphoma
  4. UBLITUXIMAB [Suspect]
     Active Substance: UBLITUXIMAB
     Indication: Lymphocytic lymphoma
  5. UMBRALISIB [Suspect]
     Active Substance: UMBRALISIB
     Indication: Chronic lymphocytic leukaemia
     Route: 048
  6. UMBRALISIB [Suspect]
     Active Substance: UMBRALISIB
     Indication: B-cell lymphoma
  7. UMBRALISIB [Suspect]
     Active Substance: UMBRALISIB
     Indication: Lymphocytic lymphoma

REACTIONS (54)
  - Thrombocytopenia [Unknown]
  - Neutropenia [Unknown]
  - Pyrexia [Unknown]
  - Cellulitis [Unknown]
  - Febrile neutropenia [Unknown]
  - Rash [Unknown]
  - Pneumonia [Unknown]
  - Atrial fibrillation [Unknown]
  - Sepsis [Unknown]
  - Abdominal pain [Unknown]
  - Syncope [Unknown]
  - Pneumonitis [Unknown]
  - Headache [Unknown]
  - Pneumonia [Unknown]
  - Skin infection [Unknown]
  - Pleural effusion [Unknown]
  - Upper gastrointestinal haemorrhage [Unknown]
  - Asthenia [Unknown]
  - Subdural hygroma [Unknown]
  - Neuropathy peripheral [Unknown]
  - Varicella zoster virus infection [Recovered/Resolved]
  - Upper respiratory tract infection [Unknown]
  - Diarrhoea [Unknown]
  - Fatigue [Unknown]
  - Infusion related reaction [Unknown]
  - Dizziness [Unknown]
  - Nausea [Unknown]
  - Cough [Unknown]
  - Insomnia [Unknown]
  - Oedema peripheral [Unknown]
  - Hypertransaminasaemia [Unknown]
  - Diarrhoea [Unknown]
  - Stomatitis [Unknown]
  - Vomiting [Unknown]
  - Anaemia [Unknown]
  - Back pain [Unknown]
  - Blood creatinine increased [Unknown]
  - Constipation [Unknown]
  - Contusion [Unknown]
  - Dyspnoea [Unknown]
  - Hyperglycaemia [Unknown]
  - Sinusitis [Unknown]
  - Vision blurred [Unknown]
  - Vitamin D decreased [Unknown]
  - Anxiety [Unknown]
  - Ecchymosis [Unknown]
  - Hypertension [Unknown]
  - Hypophosphataemia [Unknown]
  - Bronchitis [Unknown]
  - Dyspepsia [Unknown]
  - Hypoalbuminaemia [Unknown]
  - Hypocalcaemia [Unknown]
  - Myalgia [Unknown]
  - Oropharyngeal pain [Unknown]
